FAERS Safety Report 25861340 (Version 1)
Quarter: 2025Q3

REPORT INFORMATION
  Report Type: Spontaneous
  Country: CN (occurrence: CN)
  Receive Date: 20250929
  Receipt Date: 20250929
  Transmission Date: 20251021
  Serious: Yes (Other)
  Sender: BEIGENE
  Company Number: CN-BEIGENE-BGN-2025-016548

PATIENT
  Age: 68 Year
  Weight: 47 kg

DRUGS (16)
  1. TISLELIZUMAB [Suspect]
     Active Substance: TISLELIZUMAB
     Indication: Tongue neoplasm malignant stage unspecified
     Dosage: 200 MILLIGRAM, Q3WK
     Route: 041
  2. TISLELIZUMAB [Suspect]
     Active Substance: TISLELIZUMAB
     Dosage: 200 MILLIGRAM, Q3WK
  3. TISLELIZUMAB [Suspect]
     Active Substance: TISLELIZUMAB
     Dosage: 200 MILLIGRAM, Q3WK
  4. TISLELIZUMAB [Suspect]
     Active Substance: TISLELIZUMAB
     Dosage: 200 MILLIGRAM, Q3WK
     Route: 041
  5. TISLELIZUMAB [Suspect]
     Active Substance: TISLELIZUMAB
     Dosage: 200 MILLIGRAM, Q3WK
     Route: 041
  6. TISLELIZUMAB [Suspect]
     Active Substance: TISLELIZUMAB
     Dosage: 200 MILLIGRAM, Q3WK
  7. TISLELIZUMAB [Suspect]
     Active Substance: TISLELIZUMAB
     Dosage: 200 MILLIGRAM, Q3WK
  8. TISLELIZUMAB [Suspect]
     Active Substance: TISLELIZUMAB
     Dosage: 200 MILLIGRAM, Q3WK
     Route: 041
  9. PACLITAXEL [Suspect]
     Active Substance: PACLITAXEL
     Indication: Tongue neoplasm malignant stage unspecified
     Dosage: 380 MILLIGRAM, Q3WK, DAY2
  10. PACLITAXEL [Suspect]
     Active Substance: PACLITAXEL
     Dosage: 380 MILLIGRAM, Q3WK, DAY2
     Route: 041
  11. PACLITAXEL [Suspect]
     Active Substance: PACLITAXEL
     Dosage: 380 MILLIGRAM, Q3WK
  12. PACLITAXEL [Suspect]
     Active Substance: PACLITAXEL
     Dosage: 380 MILLIGRAM, Q3WK
     Route: 041
  13. NIMOTUZUMAB [Concomitant]
     Active Substance: NIMOTUZUMAB
     Indication: Tongue neoplasm malignant stage unspecified
  14. NIMOTUZUMAB [Concomitant]
     Active Substance: NIMOTUZUMAB
     Route: 041
  15. NIMOTUZUMAB [Concomitant]
     Active Substance: NIMOTUZUMAB
  16. NIMOTUZUMAB [Concomitant]
     Active Substance: NIMOTUZUMAB
     Route: 041

REACTIONS (2)
  - Neurotoxicity [Unknown]
  - Hepatic function abnormal [Unknown]
